FAERS Safety Report 5436047-6 (Version None)
Quarter: 2007Q3

REPORT INFORMATION
  Report Type: 
  Country: None (occurrence: None)
  Receive Date: 20070831
  Receipt Date: 20070829
  Transmission Date: 20080115
  Serious: Yes (Other)
  Sender: FDA-Public Use
  Company Number: D0054419A

PATIENT
  Sex: Female

DRUGS (3)
  1. ELONTRIL [Suspect]
     Route: 048
     Dates: start: 20070828, end: 20070828
  2. TIAPRIDEX [Concomitant]
     Route: 065
  3. TAFIL [Concomitant]
     Route: 065

REACTIONS (4)
  - FATIGUE [None]
  - HALLUCINATION, VISUAL [None]
  - NIGHTMARE [None]
  - PANIC ATTACK [None]
